FAERS Safety Report 4618821-9 (Version None)
Quarter: 2005Q1

REPORT INFORMATION
  Report Type: 
  Country: None (occurrence: None)
  Receive Date: 20050323
  Receipt Date: 20050302
  Transmission Date: 20050727
  Serious: Yes (Hospitalization, Other)
  Sender: FDA-Public Use
  Company Number: US_0408105064

PATIENT
  Sex: Male
  Weight: 121 kg

DRUGS (9)
  1. ZYPREXA [Suspect]
     Indication: BIPOLAR DISORDER
     Dosage: 20 MG
     Dates: start: 19991223, end: 20020601
  2. HUMALOG [Suspect]
     Dates: start: 20000331
  3. HUMULIN N [Suspect]
     Dates: start: 20000331
  4. CLONAZPEMA [Concomitant]
  5. ESKALITH CR [Concomitant]
  6. COGENTIN [Concomitant]
  7. ALTACE (RAMIPRIL DURA) [Concomitant]
  8. BENADRYL [Concomitant]
  9. POTASSIUM CHLORIDE [Concomitant]

REACTIONS (20)
  - ABNORMAL BEHAVIOUR [None]
  - AGGRESSION [None]
  - ASPARTATE AMINOTRANSFERASE INCREASED [None]
  - BLOOD CREATINE PHOSPHOKINASE MB INCREASED [None]
  - BLOOD LACTATE DEHYDROGENASE INCREASED [None]
  - CONTUSION [None]
  - DIABETES MELLITUS [None]
  - DIABETIC KETOACIDOSIS [None]
  - DIARRHOEA [None]
  - DIZZINESS [None]
  - HEADACHE [None]
  - HYPOKALAEMIA [None]
  - HYPOMANIA [None]
  - MANIA [None]
  - PNEUMONIA [None]
  - REFUSAL OF TREATMENT BY PATIENT [None]
  - ROAD TRAFFIC ACCIDENT [None]
  - THERMAL BURN [None]
  - ULCER [None]
  - WEIGHT INCREASED [None]
